FAERS Safety Report 25515304 (Version 1)
Quarter: 2025Q3

REPORT INFORMATION
  Report Type: Spontaneous
  Country: GB (occurrence: GB)
  Receive Date: 20250704
  Receipt Date: 20250704
  Transmission Date: 20251021
  Serious: Yes (Other)
  Sender: RANBAXY
  Company Number: GB-SUN PHARMACEUTICAL INDUSTRIES LTD-2025RR-514985

PATIENT
  Age: 84 Year
  Sex: Male
  Weight: 74 kg

DRUGS (3)
  1. TAMSULOSIN [Suspect]
     Active Substance: TAMSULOSIN
     Indication: Ill-defined disorder
     Dosage: TAKE ONE CAPSULE DAILY
     Route: 065
     Dates: start: 20250604
  2. ATORVASTATIN [Concomitant]
     Active Substance: ATORVASTATIN
     Indication: Ill-defined disorder
     Route: 065
     Dates: start: 20240607
  3. AMLODIPINE [Concomitant]
     Active Substance: AMLODIPINE BESYLATE
     Indication: Ill-defined disorder
     Route: 065
     Dates: start: 20241210

REACTIONS (2)
  - Syncope [Recovered/Resolved]
  - Dizziness [Recovered/Resolved]
